FAERS Safety Report 12095164 (Version 1)
Quarter: 2016Q1

REPORT INFORMATION
  Report Type: Spontaneous
  Country: US (occurrence: US)
  Receive Date: 20160219
  Receipt Date: 20160219
  Transmission Date: 20160526
  Serious: No
  Sender: FDA-Public Use
  Company Number: US-PFIZER INC-2016087637

PATIENT
  Sex: Female
  Weight: 86 kg

DRUGS (2)
  1. GABAPENTIN. [Suspect]
     Active Substance: GABAPENTIN
     Indication: NERVE INJURY
     Dosage: 210 MG, DAILY 30 MG 2 IN THE MORNING 2 AT NOON AND 3 AT NIGHT
  2. GABAPENTIN. [Suspect]
     Active Substance: GABAPENTIN
     Dosage: 90 MG, 1X/DAY, 30 MG, CAPSULES, 3 AT NIGHT

REACTIONS (4)
  - Amnesia [Unknown]
  - Intentional underdose [Unknown]
  - Drug ineffective for unapproved indication [Unknown]
  - Drug intolerance [Unknown]
